FAERS Safety Report 5922880-0 (Version None)
Quarter: 2008Q4

REPORT INFORMATION
  Report Type: 
  Country: None (occurrence: None)
  Receive Date: 20081017
  Receipt Date: 20081009
  Transmission Date: 20090506
  Serious: Yes (Disabling, Other)
  Sender: FDA-Public Use
  Company Number: JP-ABBOTT-08P-087-0482415-00

PATIENT
  Age: 67 Year
  Sex: Female
  Weight: 47 kg

DRUGS (4)
  1. SEVOFLURANE [Suspect]
     Indication: INDUCTION AND MAINTENANCE OF ANAESTHESIA
     Route: 055
  2. FENTANYL CITRATE [Concomitant]
     Indication: INDUCTION OF ANAESTHESIA
  3. VECURONIUM BROMIDE [Concomitant]
     Indication: INDUCTION OF ANAESTHESIA
     Route: 042
  4. OXYGEN [Concomitant]
     Indication: MAINTENANCE OF ANAESTHESIA
     Route: 055

REACTIONS (1)
  - ANGLE CLOSURE GLAUCOMA [None]
